FAERS Safety Report 4633141-4 (Version None)
Quarter: 2005Q2

REPORT INFORMATION
  Report Type: 
  Country: None (occurrence: None)
  Receive Date: 20050412
  Receipt Date: 20050330
  Transmission Date: 20051028
  Serious: Yes (Death)
  Sender: FDA-Public Use
  Company Number: BE-GLAXOSMITHKLINE-B0377034A

PATIENT
  Sex: Female

DRUGS (2)
  1. LAMICTAL [Suspect]
     Indication: EPILEPSY
  2. VALPROIC ACID [Concomitant]
     Indication: EPILEPSY

REACTIONS (4)
  - ATRIAL FIBRILLATION [None]
  - MOUTH ULCERATION [None]
  - TOXIC EPIDERMAL NECROLYSIS [None]
  - VENTRICULAR ARRHYTHMIA [None]
